FAERS Safety Report 5557788-6 (Version None)
Quarter: 2007Q4

REPORT INFORMATION
  Report Type: 
  Country: None (occurrence: None)
  Receive Date: 20071214
  Receipt Date: 20071204
  Transmission Date: 20080405
  Serious: Yes (Hospitalization)
  Sender: FDA-Public Use
  Company Number: US-MERCK-0712USA01348

PATIENT
  Age: 75 Year
  Sex: Female

DRUGS (2)
  1. JANUVIA [Suspect]
     Indication: BLOOD GLUCOSE
     Route: 048
     Dates: start: 20070226, end: 20070313
  2. AMARYL [Concomitant]
     Route: 065

REACTIONS (4)
  - OEDEMA [None]
  - SCLERODERMA [None]
  - SKIN HYPERPIGMENTATION [None]
  - WRONG TECHNIQUE IN DRUG USAGE PROCESS [None]
